FAERS Safety Report 6300800-7 (Version None)
Quarter: 2009Q3

REPORT INFORMATION
  Report Type: 
  Country: None (occurrence: None)
  Receive Date: 20090807
  Receipt Date: 20090803
  Transmission Date: 20100115
  Serious: Yes (Death, Hospitalization, Other)
  Sender: FDA-Public Use
  Company Number: GB-BRISTOL-MYERS SQUIBB COMPANY-14727572

PATIENT
  Age: 82 Year
  Sex: Female
  Weight: 62 kg

DRUGS (7)
  1. ABATACEPT [Suspect]
     Indication: RHEUMATOID ARTHRITIS
     Route: 042
     Dates: start: 20090227, end: 20090326
  2. AMITRIPTYLINE HCL [Concomitant]
     Route: 048
     Dates: end: 20090519
  3. BISOPROLOL [Concomitant]
     Indication: ATRIAL FIBRILLATION
     Route: 048
     Dates: end: 20090519
  4. CALCICHEW [Concomitant]
  5. ACETAMINOPHEN W/ CODEINE [Concomitant]
  6. FRUSEMIDE [Concomitant]
  7. RAMIPRIL [Concomitant]
     Route: 048
     Dates: end: 20090519

REACTIONS (3)
  - ARTHRITIS BACTERIAL [None]
  - RENAL FAILURE [None]
  - STAPHYLOCOCCAL SKIN INFECTION [None]
